FAERS Safety Report 11111103 (Version 1)
Quarter: 2015Q2

REPORT INFORMATION
  Report Type: Spontaneous
  Country: US (occurrence: US)
  Receive Date: 20150513
  Receipt Date: 20150513
  Transmission Date: 20150821
  Serious: No
  Sender: FDA-Public Use
  Company Number: US-BAYER-2015-190291

PATIENT
  Age: 41 Year
  Sex: Female
  Weight: 68.93 kg

DRUGS (1)
  1. CLARITIN-D 24 HOUR [Suspect]
     Active Substance: LORATADINE\PSEUDOEPHEDRINE SULFATE
     Indication: SEASONAL ALLERGY
     Dosage: UNK, PRN
     Route: 048
     Dates: start: 2014

REACTIONS (5)
  - Dehydration [Not Recovered/Not Resolved]
  - Asthma [None]
  - Wrong technique in drug usage process [None]
  - Dry mouth [Not Recovered/Not Resolved]
  - Insomnia [Not Recovered/Not Resolved]
